FAERS Safety Report 10268401 (Version 1)
Quarter: 2014Q2

REPORT INFORMATION
  Report Type: Spontaneous
  Country: GB (occurrence: GB)
  Receive Date: 20140630
  Receipt Date: 20140630
  Transmission Date: 20141212
  Serious: Yes (Hospitalization)
  Sender: FDA-Public Use
  Company Number: GB-TEVA-490115ISR

PATIENT
  Sex: Male

DRUGS (12)
  1. GABAPENTIN [Suspect]
     Indication: NEURALGIA
     Dosage: 900 MILLIGRAM DAILY;
     Route: 048
     Dates: start: 20140522
  2. CARVEDILOL [Concomitant]
     Route: 048
  3. MACROGOL [Concomitant]
  4. ORAMORPH [Concomitant]
     Route: 048
  5. PARACETAMOL [Concomitant]
  6. ZOPICLONE [Concomitant]
  7. CITALOPRAM [Concomitant]
  8. HYDROXYCARBAMIDE [Concomitant]
  9. LANSOPRAZOLE [Concomitant]
  10. METOCLOPRAMIDE [Concomitant]
  11. WARFARIN [Concomitant]
  12. ZOMORPH [Concomitant]

REACTIONS (2)
  - Abdominal pain [Recovering/Resolving]
  - Abdominal distension [Recovering/Resolving]
